FAERS Safety Report 5550209-9 (Version None)
Quarter: 2007Q4

REPORT INFORMATION
  Report Type: 
  Country: None (occurrence: None)
  Receive Date: 20071128
  Receipt Date: 20061006
  Transmission Date: 20080405
  Serious: Yes (Other)
  Sender: FDA-Public Use
  Company Number: 2006124035

PATIENT
  Age: 50 Year

DRUGS (1)
  1. LIPITOR [Suspect]
     Dosage: (20 MG)

REACTIONS (1)
  - AMNESIA [None]
